FAERS Safety Report 6306074-5 (Version None)
Quarter: 2009Q3

REPORT INFORMATION
  Report Type: 
  Country: None (occurrence: None)
  Receive Date: 20090812
  Receipt Date: 20090809
  Transmission Date: 20100115
  Serious: Yes (Other)
  Sender: FDA-Public Use
  Company Number: TW-ABBOTT-09P-153-0588651-00

PATIENT
  Sex: Female
  Weight: 59 kg

DRUGS (1)
  1. REDUCTIL 15MG [Suspect]
     Indication: DRUG USE FOR UNKNOWN INDICATION
     Route: 048
     Dates: start: 20080101, end: 20080101

REACTIONS (1)
  - ABORTION INDUCED [None]
